FAERS Safety Report 14782093 (Version 1)
Quarter: 2018Q2

REPORT INFORMATION
  Report Type: Spontaneous
  Country: FR (occurrence: FR)
  Receive Date: 20180420
  Receipt Date: 20180420
  Transmission Date: 20180711
  Serious: Yes (Death)
  Sender: FDA-Public Use
  Company Number: FR-ROCHE-2106304

PATIENT
  Age: 65 Year
  Sex: Female
  Weight: 90 kg

DRUGS (17)
  1. PARACETAMOL [Concomitant]
     Active Substance: ACETAMINOPHEN
     Route: 048
  2. NORMACOL [Concomitant]
     Active Substance: HERBALS\KARAYA GUM
     Dosage: SI BESOIN
     Route: 054
  3. EUPRESSYL [Concomitant]
     Active Substance: URAPIDIL
     Route: 048
  4. LAROXYL [Concomitant]
     Active Substance: AMITRIPTYLINE HYDROCHLORIDE
     Dosage: UNIT DOSE: 15 [DRP]
     Route: 047
  5. VERSATIS [Concomitant]
     Active Substance: LIDOCAINE
     Route: 061
  6. FORLAX [Concomitant]
     Active Substance: POLYETHYLENE GLYCOL 4000
     Route: 048
  7. PREGABALINE [Concomitant]
     Active Substance: PREGABALIN
     Route: 048
  8. DIAZEPAM. [Concomitant]
     Active Substance: DIAZEPAM
     Route: 048
  9. OXYCONTIN [Concomitant]
     Active Substance: OXYCODONE HYDROCHLORIDE
     Route: 048
  10. NOVOMIX 30 [Concomitant]
     Active Substance: INSULIN ASPART
     Dosage: STRENGTH: 100 U/ML
     Route: 023
  11. INNOHEP [Concomitant]
     Active Substance: TINZAPARIN SODIUM
     Route: 023
  12. SOLUPRED (FRANCE) [Concomitant]
     Active Substance: PREDNISOLONE
     Route: 048
  13. OXYNORM [Concomitant]
     Active Substance: OXYCODONE HYDROCHLORIDE
     Route: 048
  14. PERJETA [Suspect]
     Active Substance: PERTUZUMAB
     Indication: PRODUCT USED FOR UNKNOWN INDICATION
     Route: 041
     Dates: start: 20180223
  15. EDUCTYL [Concomitant]
     Active Substance: POTASSIUM BITARTRATE\SODIUM BICARBONATE
     Route: 054
  16. HERCEPTIN [Suspect]
     Active Substance: TRASTUZUMAB
     Indication: PRODUCT USED FOR UNKNOWN INDICATION
     Route: 041
     Dates: start: 20180223
  17. VENLAFAXINE [Concomitant]
     Active Substance: VENLAFAXINE HYDROCHLORIDE
     Route: 048

REACTIONS (1)
  - Respiratory distress [Fatal]

NARRATIVE: CASE EVENT DATE: 20180223
